FAERS Safety Report 4874869-0 (Version None)
Quarter: 2006Q1

REPORT INFORMATION
  Report Type: 
  Country: None (occurrence: None)
  Receive Date: 20060104
  Receipt Date: 20051223
  Transmission Date: 20060701
  Serious: Yes (Hospitalization, Other)
  Sender: FDA-Public Use
  Company Number: HQWYE582328JUL05

PATIENT
  Age: 30 Year
  Sex: Female

DRUGS (11)
  1. RAPAMUNE [Suspect]
     Indication: PROPHYLAXIS AGAINST TRANSPLANT REJECTION
     Dosage: 6 MG 1X PER 1 DAY ORAL
     Route: 048
     Dates: start: 20050614, end: 20050614
  2. RAPAMUNE [Suspect]
     Dosage: 2 MG 1X PER 1 DAY ORAL
     Route: 048
     Dates: start: 20050615, end: 20051025
  3. RAPAMUNE [Suspect]
     Dosage: 4 MG 1X PER 1 DAY ORAL
     Route: 048
     Dates: start: 20051026
  4. CYCLOSPORINE [Concomitant]
  5. PREDNISONE [Concomitant]
  6. SULFAMETHOXAZOLE + TRIMETHOPRIM [Concomitant]
  7. OMEPRAZOLE [Concomitant]
  8. ASPIRIN [Concomitant]
  9. SIMVASTATIN [Concomitant]
  10. ATENOLOL [Concomitant]
  11. FUROSEMIDE [Concomitant]

REACTIONS (3)
  - HAEMATOCRIT DECREASED [None]
  - HAEMOGLOBIN DECREASED [None]
  - RENAL IMPAIRMENT [None]
